FAERS Safety Report 18811539 (Version 2)
Quarter: 2023Q1

REPORT INFORMATION
  Report Type: Spontaneous
  Country: US (occurrence: US)
  Receive Date: 20210129
  Receipt Date: 20230125
  Transmission Date: 20230417
  Serious: Yes (Other)
  Sender: FDA-Public Use
  Company Number: US-NOVARTISTESTPH-NVSC2021US016844

PATIENT
  Sex: Female

DRUGS (1)
  1. BEOVU [Suspect]
     Active Substance: BROLUCIZUMAB-DBLL
     Indication: Neovascular age-related macular degeneration
     Dosage: UNK
     Route: 031
     Dates: start: 20200114

REACTIONS (14)
  - Retinal occlusive vasculitis [Unknown]
  - Macular oedema [Unknown]
  - Vitreous haemorrhage [Unknown]
  - Eye injury [Not Recovered/Not Resolved]
  - Injury [Unknown]
  - Pain [Unknown]
  - Emotional distress [Unknown]
  - Deformity [Unknown]
  - Anxiety [Unknown]
  - Anhedonia [Unknown]
  - Dry eye [Unknown]
  - Eye inflammation [Unknown]
  - Vision blurred [Unknown]
  - Vitreous floaters [Unknown]
